FAERS Safety Report 9310575 (Version 4)
Quarter: 2013Q4

REPORT INFORMATION
  Report Type: Report from Study
  Country: ES (occurrence: ES)
  Receive Date: 20130527
  Receipt Date: 20131029
  Transmission Date: 20140711
  Serious: Yes (Hospitalization)
  Sender: FDA-Public Use
  Company Number: ES-AMGEN-ESPCT2013034688

PATIENT
  Age: 69 Year
  Sex: Female
  Weight: 68 kg

DRUGS (16)
  1. ETANERCEPT [Suspect]
     Indication: RHEUMATOID ARTHRITIS
     Dosage: 50 MG, WEEKLY
     Route: 058
     Dates: start: 20120711
  2. LEFLUNOMIDE [Concomitant]
     Dosage: 10 MG, 1X/DAY
     Route: 048
  3. NAPROXENO                          /00256201/ [Concomitant]
     Dosage: 500 MG, 1X/DAY
     Route: 048
  4. FOLIC ACID [Concomitant]
     Dosage: 5 MG, 2X/WEEK
     Route: 048
  5. LOSARTAN POTASSIUM W/HYDROCHLOROTHIAZIDE [Concomitant]
     Dosage: 1 TABLET (EVERY DAY)
     Route: 048
     Dates: start: 201301
  6. AMLODIPINO                         /00972401/ [Concomitant]
     Dosage: 10 MG, 1X/DAY
     Route: 048
     Dates: start: 201301
  7. PARACETAMOL [Concomitant]
     Dosage: 1 G, 1X/DAY
     Route: 048
     Dates: start: 201203
  8. ESOMEPRAZOLE [Concomitant]
     Dosage: 20 MG, 1X/DAY
     Route: 048
  9. EBASTINE [Concomitant]
     Dosage: 1 DF, 1X/DAY
     Route: 048
     Dates: start: 20120829, end: 20120917
  10. SIMVASTATIN [Concomitant]
     Dosage: 10 MG, 1X/DAY
     Route: 048
     Dates: start: 20121003
  11. KETAZOLAM [Concomitant]
     Dosage: 45 MG, ALTERNATE DAY
     Dates: start: 1972
  12. IBANDRONATE [Concomitant]
     Dosage: 150 MG, 1X/DAY
     Route: 048
  13. SERTRALINE [Concomitant]
     Dosage: 1 DF, 1X/DAY
     Route: 048
     Dates: start: 201202, end: 20121007
  14. MANIDIPINE [Concomitant]
     Dosage: 10 MG, UNK
     Route: 048
     Dates: start: 201301
  15. HEPATITIS B VACCINE [Concomitant]
     Dosage: SINGLE DOSE 1 UNIT
     Route: 030
     Dates: start: 20130114, end: 20130114
  16. PNEUMOCOCCAL VACCINE [Concomitant]
     Dosage: SINGLE DOSE 1 UNIT
     Route: 030
     Dates: start: 20120716, end: 20120716

REACTIONS (1)
  - Hypertensive emergency [Recovered/Resolved]
